FAERS Safety Report 5544126-8 (Version None)
Quarter: 2007Q4

REPORT INFORMATION
  Report Type: 
  Country: None (occurrence: None)
  Receive Date: 20071206
  Receipt Date: 20071123
  Transmission Date: 20080405
  Serious: Yes (Disabling)
  Sender: FDA-Public Use
  Company Number: POMP-11281

PATIENT
  Age: 4 Year
  Sex: Female

DRUGS (3)
  1. MYOZYME [Suspect]
     Indication: GLYCOGEN STORAGE DISEASE TYPE II
     Dosage: 20 MG/KG Q2WKS, IV
     Route: 042
     Dates: start: 20060601
  2. MYOZYME [Suspect]
     Indication: GLYCOGEN STORAGE DISEASE TYPE II
     Dosage: 20 MG/KG Q2WKS, IV
     Route: 042
     Dates: start: 20050701, end: 20060609
  3. MYOZYME [Suspect]
     Indication: GLYCOGEN STORAGE DISEASE TYPE II
     Dosage: 20 MG/KG Q2WKS, IV
     Route: 042
     Dates: start: 20031127, end: 20050601

REACTIONS (4)
  - ASTHENIA [None]
  - DISEASE PROGRESSION [None]
  - EYELID PTOSIS [None]
  - ILL-DEFINED DISORDER [None]
